FAERS Safety Report 5121563-7 (Version None)
Quarter: 2006Q4

REPORT INFORMATION
  Report Type: 
  Country: None (occurrence: None)
  Receive Date: 20061006
  Receipt Date: 20060925
  Transmission Date: 20070319
  Serious: Yes (Hospitalization)
  Sender: FDA-Public Use
  Company Number: DEWYE014525SEP06

PATIENT
  Sex: Female

DRUGS (13)
  1. ENBREL [Suspect]
     Indication: DRUG USE FOR UNKNOWN INDICATION
     Dosage: UNKNOWN
     Route: 058
     Dates: end: 20060801
  2. DIGIMERCK [Concomitant]
  3. TRIAMTERENE AND HYDROCHLOROTHIAZIDE [Concomitant]
  4. BISOPROLOL FUMARATE [Concomitant]
  5. NORVASC [Concomitant]
  6. KYTTA-SEDATIVUM [Concomitant]
  7. PREDNISOLONE [Concomitant]
  8. METHOTREXATE [Concomitant]
  9. VOLTAREN [Concomitant]
  10. SALAGEN [Concomitant]
  11. XALATAN [Concomitant]
  12. NEXIUM [Concomitant]
  13. OMNIC [Concomitant]

REACTIONS (2)
  - BREAST CANCER [None]
  - BREAST CANCER FEMALE [None]
